FAERS Safety Report 5494977-3 (Version None)
Quarter: 2007Q4

REPORT INFORMATION
  Report Type: 
  Country: None (occurrence: None)
  Receive Date: 20071024
  Receipt Date: 20071017
  Transmission Date: 20080405
  Serious: Yes (Life-Threatening, Hospitalization, Other)
  Sender: FDA-Public Use
  Company Number: GB-AVENTIS-200719623GDDC

PATIENT
  Age: 72 Year
  Sex: Male

DRUGS (5)
  1. LEFLUNOMIDE [Suspect]
     Route: 048
     Dates: start: 20061127, end: 20070921
  2. TRIMEPRAZINE TAB [Concomitant]
     Route: 048
     Dates: start: 20050803
  3. CELECOXIB [Concomitant]
     Dates: start: 20040428
  4. OMEPRAZOLE [Concomitant]
  5. SERETIDE [Concomitant]
     Route: 055

REACTIONS (2)
  - HEPATOTOXICITY [None]
  - JAUNDICE [None]
